FAERS Safety Report 22037576 (Version 1)
Quarter: 2023Q1

REPORT INFORMATION
  Report Type: Report from Study
  Country: EG (occurrence: EG)
  Receive Date: 20230227
  Receipt Date: 20230227
  Transmission Date: 20230418
  Serious: Yes (Hospitalization, Other)
  Sender: FDA-Public Use
  Company Number: EG-002147023-NVSC2023EG025651

PATIENT
  Sex: Male

DRUGS (11)
  1. TACROLIMUS [Suspect]
     Active Substance: TACROLIMUS
     Indication: Prophylaxis against transplant rejection
     Dosage: 6 MG, BID
     Route: 048
     Dates: start: 20230116
  2. TACROLIMUS [Suspect]
     Active Substance: TACROLIMUS
     Dosage: 3 MG, BID
     Route: 048
  3. REBAMIPIDE [Concomitant]
     Active Substance: REBAMIPIDE
     Indication: Abdominal discomfort
     Dosage: UNK, TID (2 OR 3 MONTHS AGO)
     Route: 048
  4. SOLUPRED [Concomitant]
     Indication: Renal transplant
     Dosage: 40 MG, QD (2 TABLETS EVERY MORNING)
     Route: 048
     Dates: start: 202209
  5. CAL-MAG [Concomitant]
     Indication: Renal transplant
     Dosage: 1 DOSAGE FORM, TID (STARTED 2 OR 3 MONTHS AGO)
     Route: 048
  6. FAMOTIN [Concomitant]
     Indication: Renal transplant
     Dosage: 1 DOSAGE FORM, QN (1 TABLET EVERY NIGHT) (2 OR 3 MONTHS AGO)
     Route: 048
  7. EPOETIN BETA [Concomitant]
     Active Substance: ERYTHROPOIETIN
     Indication: Mineral supplementation
     Dosage: UNK UNK, QW (2 TIMES PER 2 WEEKS) (2 OR 3 MONTHS AGO)
     Route: 058
  8. CARVEDILOL [Concomitant]
     Active Substance: CARVEDILOL
     Indication: Hypertension
     Dosage: 1 DOSAGE FORM, Q12H (2 TIMES DAILY)
     Route: 048
     Dates: start: 20220905
  9. MYFORTIC [Concomitant]
     Active Substance: MYCOPHENOLATE SODIUM
     Indication: Immune system disorder
     Dosage: 1 DOSAGE FORM, Q6H (ONE TABLET EVERY 6 HRS TURNED INTO 2 TABLETS EVERY 12 HOURS)
     Route: 048
     Dates: start: 202211
  10. RABEPRAZOLE SODIUM [Concomitant]
     Active Substance: RABEPRAZOLE SODIUM
     Indication: Product used for unknown indication
     Dosage: 1 DOSAGE FORM, QD (EVERY MORNING)
     Route: 065
  11. MABTHERA [Concomitant]
     Active Substance: RITUXIMAB
     Indication: Kidney transplant rejection
     Dosage: UNK UNK, BID
     Route: 065
     Dates: start: 20230131, end: 20230216

REACTIONS (4)
  - Blood creatinine increased [Recovering/Resolving]
  - Kidney transplant rejection [Not Recovered/Not Resolved]
  - Haemoglobin decreased [Unknown]
  - Drug ineffective [Unknown]
